FAERS Safety Report 8586085-X (Version None)
Quarter: 2012Q3

REPORT INFORMATION
  Report Type: 
  Country: None (occurrence: None)
  Receive Date: 20120810
  Receipt Date: 20120802
  Transmission Date: 20120928
  Serious: Yes (Hospitalization, Other)
  Sender: FDA-Public Use
  Company Number: CA-ELI_LILLY_AND_COMPANY-CA201208001146

PATIENT
  Age: 91 Year
  Sex: Female

DRUGS (9)
  1. FORTEO [Suspect]
     Dosage: 20 UG, QD
     Dates: start: 20120802
  2. TYLENOL                                 /SCH/ [Concomitant]
  3. LYRICA [Concomitant]
  4. FUROSEMIDE [Concomitant]
  5. FORTEO [Suspect]
     Indication: OSTEOPOROSIS
     Dosage: 20 UG, QD
     Dates: start: 20110929, end: 20120726
  6. CALCIUM [Concomitant]
  7. VITAMIN D [Concomitant]
  8. MULTI-VITAMIN [Concomitant]
  9. ASCORBIC ACID [Concomitant]

REACTIONS (6)
  - CELLULITIS [None]
  - FALL [None]
  - LIMB INJURY [None]
  - OPEN WOUND [None]
  - GAIT DISTURBANCE [None]
  - HYPOKINESIA [None]
